FAERS Safety Report 19438729 (Version 2)
Quarter: 2021Q3

REPORT INFORMATION
  Report Type: Spontaneous
  Country: US (occurrence: US)
  Receive Date: 20210619
  Receipt Date: 20210714
  Transmission Date: 20211014
  Serious: No
  Sender: FDA-Public Use
  Company Number: US-ELI_LILLY_AND_COMPANY-US202106009260

PATIENT
  Sex: Female

DRUGS (3)
  1. HUMALOG [Suspect]
     Active Substance: INSULIN LISPRO
     Dosage: 18 U, OTHER WITH MEALS AND A CORRECTION SCALE NOT TO EXCEED 80
     Route: 065
  2. HUMALOG [Suspect]
     Active Substance: INSULIN LISPRO
     Indication: DIABETES MELLITUS
     Dosage: 14 U, OTHER WITH MEALS AND A CORRECTION SCALE NOT TO EXCEED 80
     Route: 065
     Dates: start: 20210527
  3. HUMALOG [Suspect]
     Active Substance: INSULIN LISPRO
     Dosage: 70?90 UNITS PER DAY
     Route: 065

REACTIONS (1)
  - Blood glucose increased [Unknown]
